FAERS Safety Report 8691287 (Version 2)
Quarter: 2013Q3

REPORT INFORMATION
  Report Type: Report from Study
  Country: CA (occurrence: CA)
  Receive Date: 20120730
  Receipt Date: 20130815
  Transmission Date: 20140515
  Serious: Yes (Other)
  Sender: FDA-Public Use
  Company Number: PHHY2011CA53201

PATIENT
  Sex: Female

DRUGS (3)
  1. ACLASTA [Suspect]
     Indication: OSTEOPOROSIS
     Dosage: UNK
     Route: 042
     Dates: start: 20100628
  2. ACLASTA [Suspect]
     Dosage: UNK
     Route: 042
     Dates: start: 20110728
  3. ACLASTA [Suspect]
     Dosage: UNK
     Route: 042
     Dates: start: 20120829

REACTIONS (1)
  - Thoracic vertebral fracture [Unknown]
